FAERS Safety Report 14093455 (Version 6)
Quarter: 2018Q1

REPORT INFORMATION
  Report Type: Report from Study
  Country: IL (occurrence: IL)
  Receive Date: 20171016
  Receipt Date: 20180215
  Transmission Date: 20180508
  Serious: Yes (Hospitalization, Other)
  Sender: FDA-Public Use
  Company Number: PHHY2016IL108481

PATIENT
  Age: 74 Year
  Sex: Female

DRUGS (5)
  1. AFINITOR [Suspect]
     Active Substance: EVEROLIMUS
     Dosage: 5 MG, QD
     Route: 048
     Dates: start: 201706
  2. AFINITOR [Suspect]
     Active Substance: EVEROLIMUS
     Dosage: 10 MG, QD
     Route: 048
     Dates: start: 20170215, end: 20170604
  3. AFINITOR [Suspect]
     Active Substance: EVEROLIMUS
     Indication: BREAST CANCER
     Dosage: 10 MG, QD (1/DAY)
     Route: 048
     Dates: start: 20160731, end: 20160926
  4. AFINITOR [Suspect]
     Active Substance: EVEROLIMUS
     Dosage: 10 MG, QD
     Route: 048
     Dates: start: 20170817, end: 20171109
  5. AFINITOR [Suspect]
     Active Substance: EVEROLIMUS
     Dosage: 10 MG AND 5 MG (ALTERNATIVELY), QD
     Route: 048

REACTIONS (36)
  - Abdominal pain [Recovered/Resolved]
  - Cardiac failure [Unknown]
  - Musculoskeletal pain [Not Recovered/Not Resolved]
  - Abdominal pain [Recovered/Resolved]
  - Constipation [Not Recovered/Not Resolved]
  - Vomiting [Recovered/Resolved]
  - Malignant neoplasm progression [Unknown]
  - Insomnia [Not Recovered/Not Resolved]
  - Diarrhoea [Recovered/Resolved]
  - Cough [Not Recovered/Not Resolved]
  - Blood glucose increased [Recovering/Resolving]
  - Joint swelling [Recovering/Resolving]
  - Metastases to bone [Unknown]
  - Nervousness [Not Recovered/Not Resolved]
  - General physical condition abnormal [Recovering/Resolving]
  - General physical health deterioration [Unknown]
  - Diarrhoea [Recovered/Resolved]
  - Vomiting [Recovered/Resolved]
  - Myocardial infarction [Unknown]
  - Asthenia [Recovering/Resolving]
  - Renal impairment [Unknown]
  - Breast cancer [Unknown]
  - Abdominal pain lower [Not Recovered/Not Resolved]
  - Ejection fraction decreased [Unknown]
  - Breast pain [Not Recovered/Not Resolved]
  - Diarrhoea [Not Recovered/Not Resolved]
  - Haemoglobin decreased [Unknown]
  - Chest discomfort [Recovered/Resolved]
  - Feeling abnormal [Not Recovered/Not Resolved]
  - Mobility decreased [Recovered/Resolved]
  - Depressed mood [Not Recovered/Not Resolved]
  - Impatience [Not Recovered/Not Resolved]
  - Back pain [Not Recovered/Not Resolved]
  - Diarrhoea [Recovered/Resolved]
  - Diarrhoea [Recovered/Resolved]
  - Decreased appetite [Not Recovered/Not Resolved]

NARRATIVE: CASE EVENT DATE: 20160731
